FAERS Safety Report 13403231 (Version 1)
Quarter: 2017Q2

REPORT INFORMATION
  Report Type: Spontaneous
  Country: US (occurrence: US)
  Receive Date: 20170404
  Receipt Date: 20170404
  Transmission Date: 20170830
  Serious: Yes (Other)
  Sender: FDA-Public Use
  Company Number: None

PATIENT
  Age: 50 Year
  Sex: Female
  Weight: 54 kg

DRUGS (3)
  1. PROBIOTIC [Concomitant]
     Active Substance: PROBIOTICS NOS
  2. CIPROFLOXACIN HCL [Suspect]
     Active Substance: CIPROFLOXACIN HYDROCHLORIDE
     Indication: URINARY TRACT INFECTION
     Dosage: ?          QUANTITY:1 TABLET(S);?
     Route: 048
     Dates: start: 20170402, end: 20170402
  3. CENTRUM MULTI-VITAMIN [Concomitant]

REACTIONS (9)
  - Sensory disturbance [None]
  - Arthralgia [None]
  - Fear of disease [None]
  - Swelling [None]
  - Headache [None]
  - Gait disturbance [None]
  - Musculoskeletal pain [None]
  - Muscular weakness [None]
  - Tendon disorder [None]

NARRATIVE: CASE EVENT DATE: 20170402
